FAERS Safety Report 4808255-6 (Version None)
Quarter: 2005Q4

REPORT INFORMATION
  Report Type: 
  Country: None (occurrence: None)
  Receive Date: 20051021
  Receipt Date: 20040518
  Transmission Date: 20060501
  Serious: Yes (Other)
  Sender: FDA-Public Use
  Company Number: EWC040539318

PATIENT
  Age: 53 Year
  Sex: Female
  Weight: 42 kg

DRUGS (2)
  1. OLANZAPINE [Suspect]
     Indication: SCHIZOPHRENIA
     Dosage: 5MG/ 2 DAY
     Dates: start: 20040420
  2. PIRACETAM [Concomitant]

REACTIONS (3)
  - ELECTROENCEPHALOGRAM ABNORMAL [None]
  - LEUKOPENIA [None]
  - PETIT MAL EPILEPSY [None]
